FAERS Safety Report 9304197 (Version 2)
Quarter: 2013Q3

REPORT INFORMATION
  Report Type: Spontaneous
  Country: US (occurrence: US)
  Receive Date: 20130522
  Receipt Date: 20130805
  Transmission Date: 20140515
  Serious: No
  Sender: FDA-Public Use
  Company Number: US-009507513-1305USA012748

PATIENT
  Age: 50 Year
  Sex: Female

DRUGS (15)
  1. VICTRELIS [Suspect]
     Indication: CHRONIC HEPATITIS C
     Dosage: 800 MG, THREE TIMES DAILY
     Route: 048
     Dates: start: 20130417
  2. VICTRELIS [Suspect]
     Dosage: UNK
     Route: 048
     Dates: start: 20130511
  3. VICTRELIS [Suspect]
     Dosage: 800 MG, THREE TIMES DAILY
     Route: 048
     Dates: start: 20130417
  4. RIBAPAK [Suspect]
     Indication: CHRONIC HEPATITIS C
     Dosage: UNK
     Dates: start: 20130412
  5. PEGASYS [Suspect]
     Indication: CHRONIC HEPATITIS C
     Dosage: UNK
     Dates: start: 20130412
  6. COZAAR [Concomitant]
     Dosage: UNKNOWN
     Route: 048
  7. LEVOTHYROXINE SODIUM [Concomitant]
     Dosage: UNKNOWN
     Route: 048
  8. NEXIUM [Concomitant]
     Dosage: UNKNOWN
     Route: 048
  9. AMITRIPTYLINE HYDROCHLORIDE [Concomitant]
     Dosage: UNKNOWN
     Route: 048
  10. BUSPAR [Concomitant]
  11. CELEXA [Concomitant]
  12. PROCRIT [Concomitant]
  13. PROMETHAZINE [Concomitant]
  14. ASPIRIN [Concomitant]
  15. WELLBUTRIN [Concomitant]
     Dosage: X1

REACTIONS (10)
  - Inflammatory bowel disease [Unknown]
  - Gastrointestinal pain [Unknown]
  - Diverticulitis [Unknown]
  - Abdominal pain upper [Recovering/Resolving]
  - Pain [Unknown]
  - Flatulence [Recovering/Resolving]
  - Dysgeusia [Unknown]
  - Fatigue [Unknown]
  - Haemoglobin decreased [Unknown]
  - Nausea [Recovering/Resolving]
